FAERS Safety Report 14422398 (Version 4)
Quarter: 2018Q1

REPORT INFORMATION
  Report Type: Report from Study
  Country: None (occurrence: DE)
  Receive Date: 20180123
  Receipt Date: 20180326
  Transmission Date: 20180509
  Serious: Yes (Hospitalization, Other)
  Sender: FDA-Public Use
  Company Number: DE-ABBVIE-18K-062-2231286-00

PATIENT
  Age: 51 Year
  Sex: Male

DRUGS (2)
  1. DUODOPA [Suspect]
     Active Substance: CARBIDOPA\LEVODOPA
     Indication: PARKINSON^S DISEASE
     Dosage: MD: 5ML, CRD: 2.4ML/H, ED: 1ML
     Route: 050
     Dates: start: 20170515
  2. DUODOPA [Suspect]
     Active Substance: CARBIDOPA\LEVODOPA
     Route: 050

REACTIONS (7)
  - Device dislocation [Recovered/Resolved]
  - Device fastener issue [Unknown]
  - Fall [Not Recovered/Not Resolved]
  - Device dislocation [Unknown]
  - Medical device removal [Unknown]
  - Knee operation [Not Recovered/Not Resolved]
  - Device breakage [Unknown]

NARRATIVE: CASE EVENT DATE: 2018
